FAERS Safety Report 7489888-8 (Version None)
Quarter: 2011Q2

REPORT INFORMATION
  Report Type: 
  Country: None (occurrence: None)
  Receive Date: 20110511
  Receipt Date: 20110506
  Transmission Date: 20111010
  Serious: Yes (Other)
  Sender: FDA-Public Use
  Company Number: 201110239

PATIENT
  Age: 32 Year
  Sex: Female

DRUGS (1)
  1. LIORESAL [Suspect]
     Indication: MUSCLE SPASTICITY
     Dosage: 220 MCG, DAILY, INTRATHECAL
     Route: 037

REACTIONS (7)
  - IMPLANT SITE SCAR [None]
  - DEVICE OCCLUSION [None]
  - MUSCLE SPASTICITY [None]
  - STAPHYLOCOCCUS TEST POSITIVE [None]
  - IMPLANT SITE INFECTION [None]
  - INCISION SITE COMPLICATION [None]
  - DRUG WITHDRAWAL SYNDROME [None]
